FAERS Safety Report 23740148 (Version 1)
Quarter: 2024Q2

REPORT INFORMATION
  Report Type: Report from Study
  Country: US (occurrence: US)
  Receive Date: 20240414
  Receipt Date: 20240414
  Transmission Date: 20240716
  Serious: Yes (Hospitalization)
  Sender: FDA-Public Use
  Company Number: US-ACADIA PHARMACEUTICALS INC.-ACA-2023-PIM-001661

PATIENT
  Age: 71 Year
  Sex: Male

DRUGS (20)
  1. NUPLAZID [Suspect]
     Active Substance: PIMAVANSERIN TARTRATE
     Indication: Parkinson^s disease psychosis
     Dosage: 34 MILLIGRAM, QD
     Route: 048
     Dates: start: 20230428
  2. NUPLAZID [Suspect]
     Active Substance: PIMAVANSERIN TARTRATE
     Indication: Hallucination
  3. CARBIDOPA\LEVODOPA [Concomitant]
     Active Substance: CARBIDOPA\LEVODOPA
     Dosage: 25-250 MG
  4. CARBIDOPA\LEVODOPA [Concomitant]
     Active Substance: CARBIDOPA\LEVODOPA
     Dosage: 25/100 ER
  5. VITAMIN D3 [Concomitant]
     Active Substance: CHOLECALCIFEROL
     Dosage: 2000 IU (CHOLE)
  6. DICLOFENAC [Concomitant]
     Active Substance: DICLOFENAC
     Dosage: 1 PERCENT
  7. GLUCOSAMIN + CHONDROITIN [Concomitant]
     Dosage: 1500/1200
  8. METHIMAZOLE [Concomitant]
     Active Substance: METHIMAZOLE
     Dosage: 5 MILLIGRAM
  9. MIRTAZAPINE [Concomitant]
     Active Substance: MIRTAZAPINE
     Dosage: 5 MILLIGRAM
  10. POLYETHYLENE GLYCOL 3350 [Concomitant]
     Active Substance: POLYETHYLENE GLYCOL 3350
  11. DOCUSATE SODIUM\SENNOSIDE A\SENNOSIDE B [Concomitant]
     Active Substance: DOCUSATE SODIUM\SENNOSIDE A\SENNOSIDE B
     Dosage: 8.6-5.0 MG
  12. SIMVASTATIN [Concomitant]
     Active Substance: SIMVASTATIN
     Dosage: 20 MILLIGRAM
  13. B50 COMPLEX [Concomitant]
  14. VITAMIN C [Concomitant]
     Active Substance: ASCORBIC ACID
     Dosage: 1000 MILLIGRAM
  15. COENZYME Q10 [Concomitant]
     Active Substance: DIETARY SUPPLEMENT\UBIDECARENONE
     Dosage: 200 MILLIGRAM
  16. TURMERIC + [Concomitant]
     Dosage: 500 MILLIGRAM
  17. PROZAC [Concomitant]
     Active Substance: FLUOXETINE HYDROCHLORIDE
     Dosage: 40 MILLIGRAM
  18. GABAPENTIN [Concomitant]
     Active Substance: GABAPENTIN
     Dosage: 300 MILLIGRAM
  19. TOLTERODINE [Concomitant]
     Active Substance: TOLTERODINE
     Dosage: 4 MILLIGRAM, ER
  20. BUSPIRONE [Concomitant]
     Active Substance: BUSPIRONE HYDROCHLORIDE
     Dosage: 10 MILLIGRAM

REACTIONS (3)
  - Hospitalisation [Unknown]
  - Hospitalisation [Unknown]
  - Urinary tract infection [Unknown]

NARRATIVE: CASE EVENT DATE: 20240322
